FAERS Safety Report 4878677-6 (Version None)
Quarter: 2006Q1

REPORT INFORMATION
  Report Type: 
  Country: None (occurrence: None)
  Receive Date: 20060112
  Receipt Date: 20051201
  Transmission Date: 20060701
  Serious: Yes (Hospitalization)
  Sender: FDA-Public Use
  Company Number: PHBS2005BR17749

PATIENT
  Age: 27 Year
  Sex: Female
  Weight: 80 kg

DRUGS (4)
  1. LEPONEX [Suspect]
     Indication: BIPOLAR DISORDER
     Dosage: 200 MG/D
     Route: 048
  2. NEOZINE [Concomitant]
  3. DEPAKENE [Concomitant]
  4. DEPAKOTE [Concomitant]

REACTIONS (10)
  - ABDOMINAL DISTENSION [None]
  - BIPOLAR DISORDER [None]
  - CONDITION AGGRAVATED [None]
  - DRUG INEFFECTIVE [None]
  - HALLUCINATION [None]
  - INFLUENZA [None]
  - LIVER DISORDER [None]
  - PERSECUTORY DELUSION [None]
  - VOMITING [None]
  - WEIGHT INCREASED [None]
